FAERS Safety Report 5942188-7 (Version None)
Quarter: 2008Q4

REPORT INFORMATION
  Report Type: 
  Country: None (occurrence: None)
  Receive Date: 20081105
  Receipt Date: 20081028
  Transmission Date: 20090506
  Serious: Yes (Other)
  Sender: FDA-Public Use
  Company Number: US-CELGENEUS-163-20785-08090577

PATIENT
  Sex: Male

DRUGS (11)
  1. THALOMID [Suspect]
     Indication: MULTIPLE MYELOMA
     Route: 048
     Dates: start: 20080529
  2. THALOMID [Suspect]
     Dosage: 100-150MG
     Route: 048
     Dates: start: 20070906, end: 20080501
  3. THALOMID [Suspect]
     Dosage: 100-200MG
     Route: 048
     Dates: start: 20060920
  4. SEVELAMER [Concomitant]
     Route: 065
  5. ISONIAZID [Interacting]
     Indication: TUBERCULOSIS
     Dates: start: 20080507
  6. SYNTHROID [Concomitant]
     Indication: HYPOTHYROIDISM
     Route: 065
     Dates: start: 20080620
  7. PYRIDOXINE HCL [Concomitant]
     Indication: DRUG USE FOR UNKNOWN INDICATION
     Route: 065
     Dates: start: 20080507
  8. LOPRESSOR [Concomitant]
     Indication: HYPERTENSION
     Route: 065
  9. DEXAMETHASONE [Concomitant]
     Route: 065
     Dates: start: 20070101
  10. VITAMIN B6 [Concomitant]
     Route: 065
  11. ACYCLOVIR [Concomitant]
     Indication: DRUG USE FOR UNKNOWN INDICATION
     Route: 065
     Dates: start: 20070101

REACTIONS (1)
  - VENOUS STENOSIS [None]
